FAERS Safety Report 6714477-X (Version None)
Quarter: 2010Q2

REPORT INFORMATION
  Report Type: 
  Country: None (occurrence: None)
  Receive Date: 20100506
  Receipt Date: 20100427
  Transmission Date: 20101027
  Serious: Yes (Life-Threatening, Hospitalization, Other)
  Sender: FDA-Public Use
  Company Number: CA-AMGEN-QUU408768

PATIENT
  Age: 55 Year
  Sex: Female
  Weight: 46 kg

DRUGS (8)
  1. ENBREL [Suspect]
     Indication: DRUG USE FOR UNKNOWN INDICATION
     Route: 058
  2. ARAVA [Concomitant]
     Route: 048
  3. BISOPROLOL [Concomitant]
     Route: 065
  4. CLONAZEPAM [Concomitant]
     Route: 065
  5. FUROSEMIDE [Concomitant]
  6. LISINOPRIL [Concomitant]
     Route: 065
  7. TRIAZOLAM [Concomitant]
     Route: 065
  8. TYLENOL-500 [Concomitant]
     Route: 048

REACTIONS (9)
  - BRAIN NATRIURETIC PEPTIDE [None]
  - CARDIAC FAILURE [None]
  - CARDIAC FAILURE CONGESTIVE [None]
  - CARDIOMYOPATHY [None]
  - DILATATION VENTRICULAR [None]
  - EJECTION FRACTION DECREASED [None]
  - PULMONARY HYPERTENSION [None]
  - PULMONARY THROMBOSIS [None]
  - TRICUSPID VALVE INCOMPETENCE [None]
